FAERS Safety Report 7096740-9 (Version None)
Quarter: 2010Q4

REPORT INFORMATION
  Report Type: 
  Country: None (occurrence: None)
  Receive Date: 20101111
  Receipt Date: 20091113
  Transmission Date: 20110411
  Serious: No
  Sender: FDA-Public Use
  Company Number: US-KINGPHARMUSA00001-K200901457

PATIENT
  Age: 71 Year
  Sex: Female
  Weight: 61.224 kg

DRUGS (9)
  1. FLECTOR [Suspect]
     Indication: BACK PAIN
     Dosage: 1 PATCH, EVERY 12 HOURS
     Route: 061
     Dates: start: 20080101, end: 20080101
  2. FLECTOR [Suspect]
     Dosage: 1/2 PATCH, EVERY 12 HOURS
     Route: 061
     Dates: start: 20091101
  3. LIDODERM [Concomitant]
     Indication: BACK PAIN
     Dosage: UNK
  4. PLAQUENIL [Concomitant]
     Indication: SYSTEMIC LUPUS ERYTHEMATOSUS
     Dosage: UNK
  5. PREDNISONE [Concomitant]
     Indication: SYSTEMIC LUPUS ERYTHEMATOSUS
     Dosage: UNK
  6. LEVOXYL [Concomitant]
     Indication: HYPOTHYROIDISM
     Dosage: UNK
  7. ASPIRIN [Concomitant]
     Dosage: 81 MG, QD
  8. PAXIL [Concomitant]
     Indication: FIBROMYALGIA
     Dosage: UNK
  9. VITAMINS [Concomitant]
     Indication: VITAMIN SUPPLEMENTATION
     Dosage: UNK

REACTIONS (1)
  - APPLICATION SITE HAEMATOMA [None]
